FAERS Safety Report 8448250-1 (Version None)
Quarter: 2012Q2

REPORT INFORMATION
  Report Type: 
  Country: None (occurrence: None)
  Receive Date: 20120619
  Receipt Date: 20120419
  Transmission Date: 20120825
  Serious: No
  Sender: FDA-Public Use
  Company Number: US-FOUGERA-2012FO001072

PATIENT
  Age: 82 Year
  Sex: Male

DRUGS (1)
  1. IMIQUIMOD [Suspect]
     Indication: BASAL CELL CARCINOMA
     Route: 061
     Dates: start: 20110101

REACTIONS (3)
  - APPLICATION SITE ERYTHEMA [None]
  - OFF LABEL USE [None]
  - APPLICATION SITE PAIN [None]
